FAERS Safety Report 5211935-4 (Version None)
Quarter: 2007Q1

REPORT INFORMATION
  Report Type: 
  Country: None (occurrence: None)
  Receive Date: 20070116
  Receipt Date: 20070116
  Transmission Date: 20070707
  Serious: Yes (Hospitalization)
  Sender: FDA-Public Use
  Company Number: None

PATIENT
  Age: 70 Year
  Sex: Male
  Weight: 61.2356 kg

DRUGS (25)
  1. PHOSPHOSODA [Suspect]
     Dosage: 120 ML;X1
     Dates: start: 20061116, end: 20061117
  2. TYLENOL [Concomitant]
  3. ABILIFY [Concomitant]
  4. ASTELIN [Concomitant]
  5. BUMEX [Concomitant]
  6. DEPAKOTE [Concomitant]
  7. FLONASE [Concomitant]
  8. XALATAN [Concomitant]
  9. ESKALITH [Concomitant]
  10. CLARINEX [Concomitant]
  11. SEROQUEL [Concomitant]
  12. EXELON [Concomitant]
  13. VITAMIN E [Concomitant]
  14. LACTULOSE [Concomitant]
  15. LOVENOX [Concomitant]
  16. METAMUCIL ^SEARLE^ [Concomitant]
  17. ROBITUSSIN ^ROBINS^ [Concomitant]
  18. VITAMIN D [Concomitant]
  19. ZANTAC [Concomitant]
  20. NEXIUM [Concomitant]
  21. PEPCID [Concomitant]
  22. HUMIBID LA [Concomitant]
  23. HALDOL [Concomitant]
  24. HYDROCHLOROTHIAZIDE [Concomitant]
  25. MEMANTINE HCL [Concomitant]

REACTIONS (2)
  - HYPERNATRAEMIA [None]
  - PANCREATITIS [None]
